FAERS Safety Report 8337939-0 (Version None)
Quarter: 2012Q2

REPORT INFORMATION
  Report Type: 
  Country: None (occurrence: None)
  Receive Date: 20120504
  Receipt Date: 20120420
  Transmission Date: 20120825
  Serious: Yes (Other)
  Sender: FDA-Public Use
  Company Number: AT-FRI-1000030126

PATIENT
  Age: 61 Year
  Sex: Female
  Weight: 125 kg

DRUGS (3)
  1. MILNACIPRAN [Suspect]
     Indication: DEPRESSION
     Dosage: 100 MG
     Route: 048
     Dates: start: 20120326, end: 20120401
  2. TRAZODONE HCL [Concomitant]
  3. MARCUMAR [Concomitant]

REACTIONS (2)
  - TACHYCARDIA [None]
  - DYSPNOEA EXERTIONAL [None]
